FAERS Safety Report 15590378 (Version 1)
Quarter: 2018Q4

REPORT INFORMATION
  Report Type: Spontaneous
  Country: JP (occurrence: JP)
  Receive Date: 20181106
  Receipt Date: 20181106
  Transmission Date: 20190205
  Serious: Yes (Other)
  Sender: FDA-Public Use
  Company Number: JP-BAUSCH-BL-2018-030388

PATIENT
  Age: 14 Year
  Sex: Female
  Weight: 46.7 kg

DRUGS (2)
  1. PREDNISOLONE. [Suspect]
     Active Substance: PREDNISOLONE
     Indication: HYPOPROTEINAEMIA
     Route: 065
  2. PREDNISOLONE. [Suspect]
     Active Substance: PREDNISOLONE
     Indication: ANAEMIA

REACTIONS (2)
  - Treatment failure [Unknown]
  - Gastritis haemorrhagic [Unknown]
